FAERS Safety Report 10945532 (Version 1)
Quarter: 2015Q1

REPORT INFORMATION
  Report Type: Report from Study
  Country: US (occurrence: None)
  Receive Date: 20150319
  Receipt Date: 20150319
  Transmission Date: 20150721
  Serious: Yes (Other)
  Sender: FDA-Public Use
  Company Number: 2014SA139132

PATIENT
  Age: 41 Year
  Sex: Female

DRUGS (5)
  1. TYSABRI [Concomitant]
     Active Substance: NATALIZUMAB
  2. BETASERON [Concomitant]
     Active Substance: INTERFERON BETA-1B
  3. TECFIDERA [Concomitant]
     Active Substance: DIMETHYL FUMARATE
  4. AUBAGIO [Suspect]
     Active Substance: TERIFLUNOMIDE
     Indication: MULTIPLE SCLEROSIS
     Route: 048
     Dates: start: 20140916
  5. NOVANTRONE [Concomitant]
     Active Substance: MITOXANTRONE HYDROCHLORIDE

REACTIONS (16)
  - Multiple sclerosis relapse [None]
  - Sinusitis [None]
  - Malaise [None]
  - Drug ineffective [None]
  - Diplopia [None]
  - Fall [None]
  - Vision blurred [None]
  - Surgery [None]
  - Paraesthesia [None]
  - Memory impairment [None]
  - Nasopharyngitis [None]
  - Skin burning sensation [None]
  - Gait disturbance [None]
  - Drug dose omission [None]
  - Alopecia [None]
  - Diarrhoea [None]

NARRATIVE: CASE EVENT DATE: 201503
